FAERS Safety Report 13695202 (Version 1)
Quarter: 2017Q2

REPORT INFORMATION
  Report Type: Spontaneous
  Country: US (occurrence: US)
  Receive Date: 20170627
  Receipt Date: 20170627
  Transmission Date: 20170830
  Serious: Yes (Other)
  Sender: FDA-Public Use
  Company Number: US-TEVA-780426USA

PATIENT
  Age: 42 Year
  Sex: Male

DRUGS (1)
  1. PROPRANOLOL [Suspect]
     Active Substance: PROPRANOLOL HYDROCHLORIDE
     Indication: ANXIETY
     Dates: start: 20170607

REACTIONS (2)
  - Product use in unapproved indication [Unknown]
  - Amino acid level increased [Unknown]

NARRATIVE: CASE EVENT DATE: 201706
